FAERS Safety Report 9449008 (Version 2)
Quarter: 2013Q3

REPORT INFORMATION
  Report Type: Spontaneous
  Country: US (occurrence: US)
  Receive Date: 20130808
  Receipt Date: 20130906
  Transmission Date: 20140515
  Serious: Yes (Other)
  Sender: FDA-Public Use
  Company Number: GXBR2013US001493

PATIENT
  Age: 68 Year
  Sex: Male
  Weight: 113.38 kg

DRUGS (6)
  1. AMIODARONE HYDROCHLORIDE TABLETS [Suspect]
     Indication: ATRIAL FIBRILLATION
     Dosage: 200 MG, BID
     Route: 048
     Dates: start: 20130221, end: 20130719
  2. MULTAQ [Suspect]
     Indication: ATRIAL FIBRILLATION
     Dosage: UNK DF, UNK
     Dates: start: 2013
  3. ATORVASTATIN [Concomitant]
     Indication: HYPERLIPIDAEMIA
     Dosage: 40 MG, QD
     Route: 048
     Dates: start: 201302
  4. CARVEDILOL [Concomitant]
     Indication: HYPERTENSION
     Dosage: 3.125 MG, BID
     Route: 048
     Dates: start: 201302
  5. METFORMIN [Concomitant]
     Indication: DIABETES MELLITUS
     Dosage: 500 MG, BID
     Route: 048
  6. ASPIRIN [Concomitant]
     Dosage: 81 MG, UNK
     Dates: start: 201303

REACTIONS (8)
  - Open angle glaucoma [Not Recovered/Not Resolved]
  - Cataract [Unknown]
  - Optic neuropathy [Not Recovered/Not Resolved]
  - Papilloedema [Not Recovered/Not Resolved]
  - Vision blurred [Not Recovered/Not Resolved]
  - Visual field defect [Not Recovered/Not Resolved]
  - Blindness [Not Recovered/Not Resolved]
  - Headache [Recovered/Resolved]
